FAERS Safety Report 17217857 (Version 1)
Quarter: 2019Q4

REPORT INFORMATION
  Report Type: Spontaneous
  Country: US (occurrence: US)
  Receive Date: 20191207
  Receipt Date: 20191207
  Transmission Date: 20200122
  Serious: No
  Sender: FDA-Public Use
  Company Number: None

PATIENT
  Sex: Male

DRUGS (9)
  1. GABAPENTIN. [Concomitant]
     Active Substance: GABAPENTIN
  2. AZTREONAM 2 GM FRESENIUS KABI USA [Suspect]
     Active Substance: AZTREONAM
     Indication: OSTEOMYELITIS
     Dosage: ?          OTHER ROUTE:IV?
     Dates: start: 20191119
  3. VANCOMYCIN [Concomitant]
     Active Substance: VANCOMYCIN
  4. ATORVASTATIN [Concomitant]
     Active Substance: ATORVASTATIN
  5. METFORMIN [Concomitant]
     Active Substance: METFORMIN HYDROCHLORIDE
  6. SPIRONALTIN [Concomitant]
  7. ESCITALOPRAM [Concomitant]
     Active Substance: ESCITALOPRAM OXALATE
  8. BUMETANIDE. [Concomitant]
     Active Substance: BUMETANIDE
  9. CLOPIDOGREL [Concomitant]
     Active Substance: CLOPIDOGREL BISULFATE

REACTIONS (2)
  - Pruritus [None]
  - Ocular discomfort [None]
